FAERS Safety Report 12975984 (Version 1)
Quarter: 2016Q4

REPORT INFORMATION
  Report Type: Spontaneous
  Country: US (occurrence: US)
  Receive Date: 20161125
  Receipt Date: 20161125
  Transmission Date: 20170207
  Serious: No
  Sender: FDA-Public Use
  Company Number: US-ASTRAZENECA-2016SF22056

PATIENT
  Age: 28 Year
  Sex: Female
  Weight: 113.4 kg

DRUGS (2)
  1. NEXIUM [Suspect]
     Active Substance: ESOMEPRAZOLE MAGNESIUM
     Indication: DYSPEPSIA
     Route: 048
     Dates: start: 2001, end: 20161112
  2. NEXIUM 24HR [Concomitant]
     Active Substance: ESOMEPRAZOLE MAGNESIUM
     Indication: DYSPEPSIA
     Dosage: UNKNOWN MG, TWO TIMES A DAY
     Route: 048
     Dates: start: 20161112

REACTIONS (3)
  - Nausea [Recovered/Resolved]
  - Dyspepsia [Recovered/Resolved]
  - Off label use [Recovered/Resolved]

NARRATIVE: CASE EVENT DATE: 2001
